FAERS Safety Report 8578200 (Version 7)
Quarter: 2013Q3

REPORT INFORMATION
  Report Type: Report from Study
  Country: US (occurrence: US)
  Receive Date: 20120524
  Receipt Date: 20130918
  Transmission Date: 20140515
  Serious: Yes (Death, Hospitalization, Other)
  Sender: FDA-Public Use
  Company Number: US-ACTELION-A-NJ2012-65925

PATIENT
  Age: 31 Year
  Sex: Female

DRUGS (18)
  1. VELETRI [Suspect]
     Indication: PULMONARY ARTERIAL HYPERTENSION
     Dosage: 33 NG/KG, PER MIN
     Route: 041
     Dates: start: 2012, end: 20120617
  2. VELETRI [Suspect]
     Dosage: 30 NG/KG, PER MIN
     Route: 041
     Dates: start: 20101019, end: 2012
  3. TRACLEER [Suspect]
     Indication: PULMONARY ARTERIAL HYPERTENSION
     Dosage: UNK
     Route: 048
     Dates: start: 20080408
  4. NAFCILLIN [Suspect]
  5. REVATIO [Concomitant]
     Dosage: UNK
     Dates: start: 20080221
  6. COUMADIN [Concomitant]
     Dosage: UNK
     Dates: start: 20080319
  7. DIGOXIN [Concomitant]
     Dosage: UNK
     Dates: start: 20080226
  8. ZANTAC [Concomitant]
  9. SPIRONOLACTONE [Concomitant]
     Dosage: UNK
     Dates: start: 20100614
  10. FUROSEMIDE [Concomitant]
     Dosage: UNK
     Dates: start: 20080903
  11. CELEXA [Concomitant]
  12. REMERON [Concomitant]
     Dosage: UNK
     Dates: start: 20120430
  13. KCL [Concomitant]
  14. OXYCODONE [Concomitant]
  15. FERROUS SULFATE [Concomitant]
  16. HIBICLENS [Concomitant]
     Dosage: UNK
     Dates: start: 201007
  17. OXYGEN [Concomitant]
     Dosage: UNK
     Dates: start: 200904
  18. ZOFRAN [Concomitant]
     Dosage: UNK
     Dates: start: 201205

REACTIONS (36)
  - Right ventricular failure [Fatal]
  - Pulmonary arterial hypertension [Fatal]
  - Condition aggravated [Fatal]
  - Respiratory failure [Fatal]
  - Mechanical ventilation [Fatal]
  - Respiratory acidosis [Fatal]
  - Dyspnoea [Fatal]
  - Hypoxia [Fatal]
  - Endocarditis [Recovered/Resolved]
  - Device related sepsis [Unknown]
  - Bacteraemia [Recovered/Resolved]
  - Device dislocation [Recovered/Resolved]
  - Pyrexia [Recovered/Resolved]
  - Ischaemic hepatitis [Unknown]
  - Cardiogenic shock [Unknown]
  - Metabolic acidosis [Unknown]
  - Coagulopathy [Unknown]
  - Haemorrhage [Unknown]
  - Epistaxis [Unknown]
  - Thrombocytopenia [Unknown]
  - Subarachnoid haemorrhage [Unknown]
  - Subdural haemorrhage [Unknown]
  - Adrenal insufficiency [Unknown]
  - Blood glucose decreased [Unknown]
  - Renal failure [Unknown]
  - Myopathy [Unknown]
  - Ventricular fibrillation [Unknown]
  - Fluid overload [Not Recovered/Not Resolved]
  - Abdominal distension [Not Recovered/Not Resolved]
  - Pulmonary oedema [Unknown]
  - Pulmonary arterial wedge pressure increased [Unknown]
  - Hypotension [Unknown]
  - Pneumonia [Unknown]
  - Disseminated intravascular coagulation [Unknown]
  - Atrial flutter [Unknown]
  - Rash [Unknown]
